FAERS Safety Report 20036784 (Version 1)
Quarter: 2021Q4

REPORT INFORMATION
  Report Type: Spontaneous
  Country: JP (occurrence: JP)
  Receive Date: 20211105
  Receipt Date: 20211105
  Transmission Date: 20220303
  Serious: Yes (Hospitalization)
  Sender: FDA-Public Use
  Company Number: JP-VIIV HEALTHCARE LIMITED-JP2021JPN227450

PATIENT
  Age: 4 Decade
  Sex: Male

DRUGS (4)
  1. TIVICAY [Suspect]
     Active Substance: DOLUTEGRAVIR SODIUM
     Indication: HIV infection
     Dosage: 50 MG, 1D
     Route: 048
  2. REBAMIPIDE [Suspect]
     Active Substance: REBAMIPIDE
     Dosage: 300 MG, 1D
     Route: 048
     Dates: start: 20210916, end: 202110
  3. DESCOVY [Concomitant]
     Active Substance: EMTRICITABINE\TENOFOVIR ALAFENAMIDE FUMARATE
     Indication: HIV infection
     Dosage: UNK
     Route: 048
  4. CEFCAPENE PIVOXIL HYDROCHLORIDE [Concomitant]
     Active Substance: CEFCAPENE PIVOXIL HYDROCHLORIDE
     Dosage: 100 MG, 1D
     Route: 048
     Dates: start: 20210916, end: 202110

REACTIONS (4)
  - Hepatic function abnormal [Recovering/Resolving]
  - Nausea [Unknown]
  - Jaundice [Unknown]
  - Hepatic enzyme abnormal [Recovering/Resolving]

NARRATIVE: CASE EVENT DATE: 20211012
